FAERS Safety Report 7495860-4 (Version None)
Quarter: 2011Q2

REPORT INFORMATION
  Report Type: 
  Country: None (occurrence: None)
  Receive Date: 20110523
  Receipt Date: 20110518
  Transmission Date: 20111010
  Serious: Yes (Other)
  Sender: FDA-Public Use
  Company Number: GB-ALLERGAN-1106805US

PATIENT
  Age: 52 Year
  Sex: Female
  Weight: 66.68 kg

DRUGS (1)
  1. BOTOX [Suspect]
     Indication: HYPERTONIC BLADDER
     Dosage: 200 UNITS, SINGLE
     Dates: start: 20110411, end: 20110411

REACTIONS (2)
  - INFLUENZA LIKE ILLNESS [None]
  - RASH [None]
